FAERS Safety Report 23306072 (Version 1)
Quarter: 2023Q4

REPORT INFORMATION
  Report Type: Spontaneous
  Country: US (occurrence: US)
  Receive Date: 20231218
  Receipt Date: 20231218
  Transmission Date: 20240110
  Serious: No
  Sender: FDA-Public Use
  Company Number: US-GILEAD-2023-0654764

PATIENT
  Age: 36 Year
  Sex: Female

DRUGS (1)
  1. EPCLUSA [Suspect]
     Active Substance: SOFOSBUVIR\VELPATASVIR
     Indication: Product used for unknown indication
     Dosage: UNK (4 WEEKS)
     Route: 065
     Dates: start: 2019

REACTIONS (2)
  - Hepatitis C RNA [Not Recovered/Not Resolved]
  - Treatment noncompliance [Unknown]
